FAERS Safety Report 10114483 (Version 3)
Quarter: 2016Q2

REPORT INFORMATION
  Report Type: Report from Study
  Country: JP (occurrence: JP)
  Receive Date: 20140426
  Receipt Date: 20160616
  Transmission Date: 20160815
  Serious: Yes (Other)
  Sender: FDA-Public Use
  Company Number: JP-ROCHE-1228236

PATIENT

DRUGS (2)
  1. BEVACIZUMAB [Suspect]
     Active Substance: BEVACIZUMAB
     Indication: NON-SMALL CELL LUNG CANCER
     Dosage: ON DAY 1 EVERY 3 WEEK
     Route: 042
  2. PEMETREXED [Suspect]
     Active Substance: PEMETREXED
     Indication: NON-SMALL CELL LUNG CANCER
     Dosage: ON DAY 1 EVERY 3 WEEK
     Route: 042

REACTIONS (9)
  - Leukopenia [Unknown]
  - Nausea [Unknown]
  - Fatigue [Unknown]
  - Neutropenia [Unknown]
  - Febrile neutropenia [Unknown]
  - Decreased appetite [Unknown]
  - Anaemia [Unknown]
  - Thrombocytopenia [Unknown]
  - Hypertension [Unknown]
